FAERS Safety Report 4747635-4 (Version None)
Quarter: 2005Q3

REPORT INFORMATION
  Report Type: 
  Country: None (occurrence: None)
  Receive Date: 20050818
  Receipt Date: 20050308
  Transmission Date: 20060218
  Serious: No
  Sender: FDA-Public Use
  Company Number: US-BRISTOL-MYERS SQUIBB COMPANY-12890075

PATIENT
  Age: 38 Year
  Sex: Female

DRUGS (2)
  1. TEQUIN [Suspect]
     Dates: start: 20050228, end: 20050307
  2. NASONEX [Concomitant]

REACTIONS (2)
  - ARTHRALGIA [None]
  - DEPRESSED LEVEL OF CONSCIOUSNESS [None]
